FAERS Safety Report 21119842 (Version 1)
Quarter: 2022Q3

REPORT INFORMATION
  Report Type: Spontaneous
  Country: US (occurrence: US)
  Receive Date: 20220722
  Receipt Date: 20220722
  Transmission Date: 20221027
  Serious: No
  Sender: FDA-Public Use
  Company Number: US-PERRIGO-22US009061

PATIENT
  Sex: Male

DRUGS (2)
  1. MOTRIN IB [Suspect]
     Active Substance: IBUPROFEN
     Indication: Pyrexia
     Dosage: 600 MG, QD
     Route: 048
     Dates: start: 20220617, end: 20220618
  2. MOTRIN IB [Suspect]
     Active Substance: IBUPROFEN
     Indication: Inflammation
     Dosage: 600 MG, TWICE
     Route: 048
     Dates: start: 20220619, end: 20220619

REACTIONS (3)
  - Confusional state [Recovered/Resolved]
  - Panic reaction [Recovered/Resolved]
  - Incorrect dose administered [Unknown]

NARRATIVE: CASE EVENT DATE: 20220617
